FAERS Safety Report 16912514 (Version 1)
Quarter: 2019Q4

REPORT INFORMATION
  Report Type: Spontaneous
  Country: FR (occurrence: FR)
  Receive Date: 20191014
  Receipt Date: 20191014
  Transmission Date: 20200122
  Serious: Yes (Hospitalization)
  Sender: FDA-Public Use
  Company Number: FR-TEVA-2019-FR-1120605

PATIENT
  Age: 56 Year
  Sex: Female
  Weight: 48 kg

DRUGS (5)
  1. SALAZOPYRINE [Suspect]
     Active Substance: SULFASALAZINE
     Indication: ANKYLOSING SPONDYLITIS
     Dosage: 1 DF/ DAYS
     Route: 048
     Dates: end: 20190814
  2. KETOPROFENE [Suspect]
     Active Substance: KETOPROFEN
     Indication: SCIATICA
     Dosage: 200MG/ DAY/ 4 DAYS
     Route: 048
     Dates: start: 20190719, end: 20190723
  3. CELEBREX [Suspect]
     Active Substance: CELECOXIB
     Indication: ANKYLOSING SPONDYLITIS
     Dosage: 2 DF / DAYS/ 5 YEARS
     Route: 048
     Dates: start: 2014, end: 20190814
  4. CORTANCYL 20 MG, COMPRIME [Suspect]
     Active Substance: PREDNISONE
     Indication: SCIATICA
     Dosage: 2.5DF/ DAYS / 10 DAYS
     Route: 048
     Dates: start: 20190723, end: 20190802
  5. IZALGI 500 MG/25 MG, GELULE [Suspect]
     Active Substance: ACETAMINOPHEN\OPIUM
     Indication: SCIATICA
     Dosage: 4 DF/ DAYS/ 4 DAYS
     Route: 048
     Dates: start: 20190719, end: 20190723

REACTIONS (2)
  - Hepatocellular injury [Recovered/Resolved]
  - Cholestasis [Recovered/Resolved]

NARRATIVE: CASE EVENT DATE: 20190814
